FAERS Safety Report 10573129 (Version 1)
Quarter: 2014Q4

REPORT INFORMATION
  Report Type: Spontaneous
  Country: US (occurrence: None)
  Receive Date: 20141106
  Receipt Date: 20141106
  Transmission Date: 20150529
  Serious: Yes (Life-Threatening)
  Sender: FDA-Public Use
  Company Number: ONY-2014-005

PATIENT
  Age: 29 Week
  Sex: Female
  Weight: 1.14 kg

DRUGS (1)
  1. INFASURF [Suspect]
     Active Substance: CALFACTANT
     Indication: PRODUCT USED FOR UNKNOWN INDICATION
     Route: 037
     Dates: start: 20141030, end: 20141031

REACTIONS (5)
  - Bradycardia [None]
  - Endotracheal intubation complication [None]
  - Liquid product physical issue [None]
  - Wrong technique in drug usage process [None]
  - Oxygen saturation decreased [None]

NARRATIVE: CASE EVENT DATE: 20141031
